FAERS Safety Report 17043701 (Version 2)
Quarter: 2019Q4

REPORT INFORMATION
  Report Type: Spontaneous
  Country: US (occurrence: US)
  Receive Date: 20191118
  Receipt Date: 20191120
  Transmission Date: 20200122
  Serious: No
  Sender: FDA-Public Use
  Company Number: US-ACTELION-A-NJ2019-195977

PATIENT
  Age: 49 Year
  Sex: Female

DRUGS (5)
  1. TRAVATAN Z [Concomitant]
     Active Substance: TRAVOPROST
  2. LATANOPROST. [Concomitant]
     Active Substance: LATANOPROST
  3. WARFARIN [Concomitant]
     Active Substance: WARFARIN
     Dosage: 2 MG
  4. TRACLEER [Suspect]
     Active Substance: BOSENTAN
     Indication: PULMONARY ARTERIAL HYPERTENSION
     Dosage: 62.5 MG 2 TABS AM, 1 TAB PM
     Route: 048
     Dates: start: 20190529
  5. HYDROXYCHLOROQUINE [Concomitant]
     Active Substance: HYDROXYCHLOROQUINE
     Dosage: 200 MG

REACTIONS (3)
  - Product dose omission [Recovered/Resolved]
  - Chest pain [Unknown]
  - Memory impairment [Recovered/Resolved]

NARRATIVE: CASE EVENT DATE: 201907
